FAERS Safety Report 6894868-7 (Version None)
Quarter: 2010Q3

REPORT INFORMATION
  Report Type: 
  Country: None (occurrence: None)
  Receive Date: 20100802
  Receipt Date: 20100723
  Transmission Date: 20110219
  Serious: Yes (Hospitalization)
  Sender: FDA-Public Use
  Company Number: MX-ROCHE-704935

PATIENT
  Sex: Female
  Weight: 74.5 kg

DRUGS (4)
  1. PEGINTERFERON ALFA-2A [Suspect]
     Route: 058
     Dates: start: 20081218, end: 20091119
  2. RIBAVIRIN [Suspect]
     Dosage: FREQUENCY: DAILY
     Route: 048
     Dates: start: 20081218, end: 20091126
  3. OMEPRAZOLE [Concomitant]
     Indication: GASTRITIS
     Route: 048
     Dates: start: 20081218, end: 20091119
  4. PARACETAMOL [Concomitant]
     Indication: HEADACHE
     Route: 048
     Dates: start: 20081218, end: 20091119

REACTIONS (1)
  - THYROID NEOPLASM [None]
